FAERS Safety Report 25179512 (Version 1)
Quarter: 2025Q2

REPORT INFORMATION
  Report Type: Spontaneous
  Country: US (occurrence: None)
  Receive Date: 20250409
  Receipt Date: 20250409
  Transmission Date: 20250716
  Serious: No
  Sender: FDA-CTU
  Company Number: None

PATIENT
  Age: 67 Year
  Sex: Male
  Weight: 94 kg

DRUGS (1)
  1. LISINOPRIL [Suspect]
     Active Substance: LISINOPRIL
     Indication: Hypertension
     Dosage: FREQUENCY : DAILY;?
     Route: 048
     Dates: start: 20240911, end: 20240912

REACTIONS (6)
  - Angioedema [None]
  - Alcohol withdrawal syndrome [None]
  - Swelling face [None]
  - Swollen tongue [None]
  - Dysphonia [None]
  - Palatal oedema [None]

NARRATIVE: CASE EVENT DATE: 20240912
